FAERS Safety Report 9031748 (Version 2)
Quarter: 2013Q1

REPORT INFORMATION
  Report Type: Spontaneous
  Country: NO (occurrence: NO)
  Receive Date: 20130124
  Receipt Date: 20130131
  Transmission Date: 20140127
  Serious: Yes (Life-Threatening, Hospitalization, Other)
  Sender: FDA-Public Use
  Company Number: NO-ABBOTT-13P-122-1038836-00

PATIENT
  Age: 45 Year
  Sex: Female

DRUGS (2)
  1. HUMIRA [Suspect]
     Indication: CROHN^S DISEASE
     Dosage: DOSING INTERVAL EVERY 14 DAY
     Route: 040
     Dates: start: 20120307, end: 20121011
  2. NEXIUM [Concomitant]
     Indication: GASTRITIS
     Dosage: 40 MILLIGRAM
     Route: 048
     Dates: start: 2010

REACTIONS (9)
  - Pyrexia [Recovering/Resolving]
  - Headache [Recovering/Resolving]
  - Nausea [Recovering/Resolving]
  - Hyperacusis [Recovering/Resolving]
  - Photophobia [Recovering/Resolving]
  - Herpes simplex encephalitis [Recovering/Resolving]
  - Arthralgia [Unknown]
  - Myalgia [Unknown]
  - Meningitis aseptic [Unknown]
